FAERS Safety Report 23216519 (Version 1)
Quarter: 2023Q4

REPORT INFORMATION
  Report Type: Spontaneous
  Country: US (occurrence: US)
  Receive Date: 20231122
  Receipt Date: 20231122
  Transmission Date: 20240110
  Serious: No
  Sender: FDA-Public Use
  Company Number: US-AUROBINDO-AUR-APL-2023-059839

PATIENT
  Sex: Female

DRUGS (1)
  1. FLUCONAZOLE [Suspect]
     Active Substance: FLUCONAZOLE
     Indication: Candida infection
     Dosage: TWO 150MG TABLETS BY MOUTH ON THE FIRST DAY, AND THEN ONE TABLET BY MOUTH ONCE DAILY FOR 14 DAYS
     Route: 048
     Dates: start: 20230914

REACTIONS (4)
  - Dysgeusia [Unknown]
  - Product physical issue [Unknown]
  - Product solubility abnormal [Unknown]
  - Product availability issue [Unknown]
